FAERS Safety Report 24739153 (Version 2)
Quarter: 2024Q4

REPORT INFORMATION
  Report Type: Spontaneous
  Country: US (occurrence: US)
  Receive Date: 20241216
  Receipt Date: 20241226
  Transmission Date: 20250115
  Serious: No
  Sender: PFIZER
  Company Number: US-PFIZER INC-PV202400013161

PATIENT
  Age: 67 Year
  Sex: Female
  Weight: 96.615 kg

DRUGS (2)
  1. BOSULIF [Suspect]
     Active Substance: BOSUTINIB MONOHYDRATE
     Indication: Chronic myeloid leukaemia
     Dosage: 500 MG, DAILY
     Route: 048
     Dates: start: 20241202, end: 202412
  2. BOSULIF [Suspect]
     Active Substance: BOSUTINIB MONOHYDRATE
     Dosage: 300 MG, DAILY
     Route: 048
     Dates: start: 202412

REACTIONS (5)
  - Dyspnoea [Unknown]
  - Fatigue [Unknown]
  - Gait disturbance [Unknown]
  - Rash [Unknown]
  - Anaemia [Unknown]
